FAERS Safety Report 6130037-6 (Version None)
Quarter: 2009Q1

REPORT INFORMATION
  Report Type: 
  Country: None (occurrence: None)
  Receive Date: 20090323
  Receipt Date: 20090323
  Transmission Date: 20090719
  Serious: Yes (Hospitalization)
  Sender: FDA-Public Use
  Company Number: None

PATIENT
  Sex: Male
  Weight: 108.5911 kg

DRUGS (1)
  1. RITUXIMAB [Suspect]
     Indication: CHRONIC LYMPHOCYTIC LEUKAEMIA
     Dosage: 500MG/ M2 DAYS 1 + 14 IV
     Route: 042
     Dates: start: 20081111, end: 20090311

REACTIONS (9)
  - BLOOD GLUCOSE INCREASED [None]
  - CHILLS [None]
  - FEBRILE NEUTROPENIA [None]
  - HEADACHE [None]
  - HEART RATE INCREASED [None]
  - OROPHARYNGEAL PAIN [None]
  - PLATELET COUNT DECREASED [None]
  - PRODUCTIVE COUGH [None]
  - WHITE BLOOD CELL COUNT INCREASED [None]
